FAERS Safety Report 5340623-9 (Version None)
Quarter: 2007Q2

REPORT INFORMATION
  Report Type: 
  Country: None (occurrence: None)
  Receive Date: 20070405
  Receipt Date: 20061228
  Transmission Date: 20071010
  Serious: Yes (Hospitalization)
  Sender: FDA-Public Use
  Company Number: US200612004606

PATIENT
  Age: 33 Year
  Sex: Male

DRUGS (3)
  1. PROZAC [Suspect]
     Indication: DEPRESSION
     Dosage: SEE IMAGE
  2. CYMBALTA [Suspect]
     Indication: BACK PAIN
     Dosage: SEE IMAGE
     Dates: start: 20060101
  3. MOTRIN [Concomitant]

REACTIONS (4)
  - ENERGY INCREASED [None]
  - INSOMNIA [None]
  - MENTAL DISORDER [None]
  - SOMNOLENCE [None]
